FAERS Safety Report 7517430-1 (Version None)
Quarter: 2011Q2

REPORT INFORMATION
  Report Type: 
  Country: None (occurrence: None)
  Receive Date: 20110601
  Receipt Date: 20110519
  Transmission Date: 20111010
  Serious: Yes (Hospitalization)
  Sender: FDA-Public Use
  Company Number: FR-PFIZER INC-2010160133

PATIENT
  Age: 48 Year
  Sex: Male

DRUGS (3)
  1. ADVIL LIQUI-GELS [Suspect]
     Indication: TONSILLITIS
     Dosage: UNK
     Route: 048
     Dates: start: 20100816, end: 20100818
  2. CEFIXIME [Suspect]
     Indication: TONSILLITIS
     Dosage: UNK
     Route: 048
     Dates: start: 20100816, end: 20100818
  3. ACETAMINOPHEN [Concomitant]
     Indication: TONSILLITIS
     Dosage: UNK
     Dates: start: 20100816

REACTIONS (1)
  - ERYTHEMA NODOSUM [None]
